FAERS Safety Report 9711540 (Version 1)
Quarter: 2013Q4

REPORT INFORMATION
  Report Type: Spontaneous
  Country: US (occurrence: US)
  Receive Date: 20131126
  Receipt Date: 20131126
  Transmission Date: 20140711
  Serious: No
  Sender: FDA-Public Use
  Company Number: US-BRISTOL-MYERS SQUIBB COMPANY-19073717

PATIENT
  Age: 51 Year
  Sex: Male

DRUGS (4)
  1. BYDUREON [Suspect]
     Dosage: 07/2014, 02/2016
     Dates: start: 20130630
  2. VITAMIN D [Concomitant]
  3. LISINOPRIL [Concomitant]
  4. LOVAZA [Concomitant]

REACTIONS (2)
  - Injection site pain [Recovered/Resolved]
  - Nausea [Unknown]
